FAERS Safety Report 24297086 (Version 1)
Quarter: 2024Q3

REPORT INFORMATION
  Report Type: Spontaneous
  Country: US (occurrence: US)
  Receive Date: 20240909
  Receipt Date: 20240909
  Transmission Date: 20241016
  Serious: Yes (Life-Threatening)
  Sender: MYLAN
  Company Number: US-MYLANLABS-2024M1081939

PATIENT
  Age: 20 Year
  Sex: Female

DRUGS (1)
  1. FENTANYL [Suspect]
     Active Substance: FENTANYL\FENTANYL CITRATE
     Indication: Product used for unknown indication
     Dosage: UNK
     Route: 065

REACTIONS (2)
  - Overdose [Unknown]
  - Counterfeit product administered [Unknown]
